FAERS Safety Report 6457226-5 (Version None)
Quarter: 2009Q4

REPORT INFORMATION
  Report Type: 
  Country: None (occurrence: None)
  Receive Date: 20091119
  Receipt Date: 20091104
  Transmission Date: 20100525
  Serious: Yes (Other)
  Sender: FDA-Public Use
  Company Number: US-JNJFOC-20091102140

PATIENT
  Age: 61 Year
  Sex: Male

DRUGS (2)
  1. DACOGEN [Suspect]
     Indication: MYELODYSPLASTIC SYNDROME
     Dosage: MG/M2, 1 IN 1 DAY, INTRAVENOUS
     Route: 042
     Dates: start: 20070401
  2. DACOGEN [Suspect]
     Indication: MYELODYSPLASTIC SYNDROME
     Dosage: MG/M2, 1 IN 1 DAY, INTRAVENOUS
     Route: 042
     Dates: start: 20071201

REACTIONS (2)
  - BONE MARROW FAILURE [None]
  - GRAFT VERSUS HOST DISEASE [None]
